FAERS Safety Report 10576789 (Version 2)
Quarter: 2014Q4

REPORT INFORMATION
  Report Type: Spontaneous
  Country: RU (occurrence: RU)
  Receive Date: 20141111
  Receipt Date: 20141204
  Transmission Date: 20150529
  Serious: Yes (Other)
  Sender: FDA-Public Use
  Company Number: RU-BAYER-2014-164224

PATIENT
  Age: 38 Year
  Sex: Female
  Weight: 67.12 kg

DRUGS (4)
  1. QLAIRA [Suspect]
     Active Substance: DIENOGEST\ESTRADIOL VALERATE
     Indication: CONTRACEPTION
     Dosage: 1 DF, QD
     Route: 048
     Dates: start: 20131020, end: 20141017
  2. QLAIRA [Suspect]
     Active Substance: DIENOGEST\ESTRADIOL VALERATE
     Indication: MENORRHAGIA
  3. QLAIRA [Suspect]
     Active Substance: DIENOGEST\ESTRADIOL VALERATE
     Indication: ENDOMETRIOSIS
  4. VISANNA [Suspect]
     Active Substance: DIENOGEST
     Route: 048

REACTIONS (11)
  - Pelvic pain [Recovered/Resolved]
  - Menstrual disorder [Recovered/Resolved]
  - Mood swings [Recovered/Resolved]
  - Metrorrhagia [Recovered/Resolved]
  - Libido decreased [Recovered/Resolved]
  - Abdominal pain [Recovered/Resolved]
  - Endometrial hyperplasia [Recovered/Resolved]
  - Body temperature increased [Recovered/Resolved]
  - Uterine leiomyoma [Not Recovered/Not Resolved]
  - Weight increased [Recovered/Resolved]
  - Vaginal haemorrhage [Recovered/Resolved]

NARRATIVE: CASE EVENT DATE: 20140828
